FAERS Safety Report 7746154-0 (Version None)
Quarter: 2011Q3

REPORT INFORMATION
  Report Type: 
  Country: None (occurrence: None)
  Receive Date: 20110913
  Receipt Date: 20110908
  Transmission Date: 20111222
  Serious: Yes (Death, Life-Threatening, Hospitalization)
  Sender: FDA-Public Use
  Company Number: DE-ROCHE-716766

PATIENT
  Sex: Female

DRUGS (28)
  1. SODIUM PICOSULFATE [Concomitant]
     Indication: CONSTIPATION
     Dates: start: 20100629
  2. CISPLATIN [Suspect]
     Indication: NON-SMALL CELL LUNG CANCER
     Dosage: FREQUENCY: DAY 1 EVERY 21 DAYS.
     Route: 042
     Dates: start: 20100610
  3. FOLIC ACID [Concomitant]
     Dates: start: 20100601, end: 20100707
  4. CIPROFLOXACIN [Concomitant]
     Dates: start: 20100610
  5. DEXAMETHASONE [Concomitant]
     Dates: start: 20100630, end: 20100702
  6. TRAMADOL HYDROCHLORIDE [Concomitant]
     Dates: start: 20100611
  7. METAMIZOL [Concomitant]
     Dosage: DRUG REPORTED AS METAMIZOLE
     Dates: start: 20100613
  8. ONDANSETRON [Concomitant]
     Dates: start: 20100610
  9. HYDROMORPHONE HCL [Concomitant]
     Dates: start: 20100614
  10. BEVACIZUMAB [Suspect]
     Indication: NON-SMALL CELL LUNG CANCER
     Dosage: FREQUENCY: DAY 1 EVERY 21 DAYS.
     Route: 042
     Dates: start: 20100610
  11. PEMETREXED [Suspect]
     Indication: NON-SMALL CELL LUNG CANCER
     Dosage: FORM: VIAL, FREQUENCY: DAY 1 EVERY 21 DAYS.
     Route: 042
     Dates: start: 20100610
  12. LORAZEPAM [Concomitant]
     Indication: PAIN
     Dates: start: 20100613
  13. NOVALGIN [Concomitant]
     Dates: start: 20100518
  14. PANTOPRAZOLE [Concomitant]
     Dates: start: 20100611
  15. TEPILTA [Concomitant]
     Dates: start: 20100701, end: 20100701
  16. MORPHINE [Concomitant]
     Indication: PAIN
     Dates: start: 20100614
  17. ESTRADIOL [Concomitant]
  18. BISOPROLOL FUMARATE [Concomitant]
     Dates: start: 20100512
  19. MOVIPREP [Concomitant]
     Dates: start: 20100521
  20. KALINOR [Concomitant]
     Dates: start: 20100613
  21. LEVOTHYROXINE SODIUM [Concomitant]
  22. AMITRIPTYLINE HCL [Concomitant]
     Dates: start: 20100527
  23. ACETYLSALICYLIC ACID SRT [Concomitant]
     Dates: start: 20100602
  24. CAPROS [Concomitant]
     Dates: start: 20100616
  25. LAXOBERAL [Concomitant]
     Dates: start: 20100629
  26. VITAMIN B-12 [Concomitant]
     Dates: start: 20100610, end: 20100610
  27. MCP [Concomitant]
     Indication: NAUSEA
     Dates: start: 20100611
  28. FRESUBIN [Concomitant]
     Dates: start: 20100630

REACTIONS (3)
  - PNEUMONIA ASPIRATION [None]
  - DEHYDRATION [None]
  - COMA [None]
